FAERS Safety Report 15338909 (Version 1)
Quarter: 2018Q3

REPORT INFORMATION
  Report Type: Spontaneous
  Country: US (occurrence: US)
  Receive Date: 20180828
  Receipt Date: 20180828
  Transmission Date: 20181010
  Serious: Yes (Hospitalization)
  Sender: FDA-Public Use
  Company Number: None

PATIENT
  Age: 52 Year
  Sex: Female
  Weight: 57.15 kg

DRUGS (1)
  1. LAMOTRIGINE. [Suspect]
     Active Substance: LAMOTRIGINE
     Indication: BIPOLAR DISORDER
     Dosage: ?          QUANTITY:1 TABLET(S);?
     Route: 048
     Dates: start: 20100512

REACTIONS (12)
  - Therapy change [None]
  - Dyspnoea [None]
  - Muscle spasms [None]
  - Neck pain [None]
  - Pulmonary congestion [None]
  - Asthenia [None]
  - Chest pain [None]
  - Palpitations [None]
  - Heart rate decreased [None]
  - Back pain [None]
  - Dizziness [None]
  - Throat irritation [None]

NARRATIVE: CASE EVENT DATE: 20180722
